FAERS Safety Report 7571366-9 (Version None)
Quarter: 2011Q2

REPORT INFORMATION
  Report Type: 
  Country: None (occurrence: None)
  Receive Date: 20110624
  Receipt Date: 20110616
  Transmission Date: 20111010
  Serious: Yes (Life-Threatening, Hospitalization, Other)
  Sender: FDA-Public Use
  Company Number: B0728204A

PATIENT
  Age: 76 Year
  Sex: Female

DRUGS (4)
  1. LAMICTAL [Suspect]
     Dosage: 25MG PER DAY
     Route: 048
  2. LITHIUM CARBONATE [Concomitant]
     Dosage: 300MG PER DAY
     Route: 065
  3. PROPRANOLOL HYDROCHLORIDE [Concomitant]
     Route: 065
  4. SEROQUEL [Concomitant]
     Route: 065

REACTIONS (12)
  - MUCOSAL EROSION [None]
  - CIRCUMORAL OEDEMA [None]
  - ASTHENIA [None]
  - DYSKINESIA [None]
  - BLISTER [None]
  - HAEMORRHAGE [None]
  - ANGIOEDEMA [None]
  - STEVENS-JOHNSON SYNDROME [None]
  - SCAB [None]
  - BODY TEMPERATURE INCREASED [None]
  - MUCOUS MEMBRANE DISORDER [None]
  - ERYTHEMA [None]
